FAERS Safety Report 12973050 (Version 1)
Quarter: 2016Q4

REPORT INFORMATION
  Report Type: Spontaneous
  Country: US (occurrence: US)
  Receive Date: 20161124
  Receipt Date: 20161124
  Transmission Date: 20170207
  Serious: Yes (Disabling, Other)
  Sender: FDA-Public Use
  Company Number: US-APOTEX-2016AP014933

PATIENT
  Age: 26 Year
  Sex: Male

DRUGS (1)
  1. CIPROFLOXACIN HYDROCHLORIDE. [Suspect]
     Active Substance: CIPROFLOXACIN HYDROCHLORIDE
     Indication: DIARRHOEA INFECTIOUS
     Dosage: 500 MG, UNK
     Route: 065

REACTIONS (4)
  - Wheelchair user [Recovered/Resolved]
  - Bedridden [Recovered/Resolved]
  - Joint range of motion decreased [Recovered/Resolved]
  - Tendonitis [Recovered/Resolved]
